FAERS Safety Report 18242691 (Version 1)
Quarter: 2020Q3

REPORT INFORMATION
  Report Type: Spontaneous
  Country: NL (occurrence: PT)
  Receive Date: 20200908
  Receipt Date: 20200908
  Transmission Date: 20201103
  Serious: Yes (Life-Threatening)
  Sender: FDA-Public Use
  Company Number: PT-FRESENIUS KABI-FK202009093

PATIENT
  Age: 78 Year
  Sex: Female

DRUGS (1)
  1. ATROPINE (MANUFACTURER UNKNOWN) [Suspect]
     Active Substance: ATROPINE
     Indication: BRADYCARDIA
     Dosage: ATROPINE 0.5 MG
     Route: 042
     Dates: start: 20200730, end: 20200730

REACTIONS (1)
  - Malignant hypertension [Recovered/Resolved]

NARRATIVE: CASE EVENT DATE: 20200730
